FAERS Safety Report 19478719 (Version 2)
Quarter: 2021Q3

REPORT INFORMATION
  Report Type: Spontaneous
  Country: US (occurrence: US)
  Receive Date: 20210630
  Receipt Date: 20210816
  Transmission Date: 20211014
  Serious: No
  Sender: FDA-Public Use
  Company Number: US-SA-2021SA209990

PATIENT
  Age: 55 Year
  Sex: Female

DRUGS (13)
  1. DUPIXENT [Suspect]
     Active Substance: DUPILUMAB
     Indication: ASTHMA
     Dosage: 300 MG, QOW
     Route: 058
  2. ZYRTEC [Concomitant]
     Active Substance: CETIRIZINE HYDROCHLORIDE
  3. DUPIXENT [Suspect]
     Active Substance: DUPILUMAB
     Indication: DERMATITIS ATOPIC
     Dosage: 600 MG, 1X
     Route: 058
     Dates: start: 20210611, end: 20210611
  4. DUPIXENT [Suspect]
     Active Substance: DUPILUMAB
     Indication: URTICARIA
  5. TACROLIMUS. [Concomitant]
     Active Substance: TACROLIMUS
  6. CALCIUM CARBONATE. [Concomitant]
     Active Substance: CALCIUM CARBONATE
  7. VITAMIN D3 [Concomitant]
     Active Substance: CHOLECALCIFEROL
  8. XOLAIR [Concomitant]
     Active Substance: OMALIZUMAB
  9. VITAMINS NOS [Concomitant]
     Active Substance: VITAMINS
  10. COVID?19 VACCINE [Concomitant]
  11. MOXIFLOXACIN. [Concomitant]
     Active Substance: MOXIFLOXACIN
  12. PREDNISONE. [Concomitant]
     Active Substance: PREDNISONE
  13. LOTEMAX SM [Concomitant]
     Active Substance: LOTEPREDNOL ETABONATE

REACTIONS (4)
  - Therapeutic response delayed [Unknown]
  - Pruritus [Not Recovered/Not Resolved]
  - Product use in unapproved indication [Unknown]
  - Burning sensation [Unknown]

NARRATIVE: CASE EVENT DATE: 20210611
